FAERS Safety Report 21358272 (Version 6)
Quarter: 2022Q4

REPORT INFORMATION
  Report Type: Report from Study
  Country: PL (occurrence: None)
  Receive Date: 20220921
  Receipt Date: 20221114
  Transmission Date: 20230112
  Serious: Yes (Death, Hospitalization)
  Sender: FDA-Public Use
  Company Number: PL-ROCHE-3180993

PATIENT
  Age: 79 Year
  Sex: Male
  Weight: 97.5 kg

DRUGS (17)
  1. MOSUNETUZUMAB [Suspect]
     Active Substance: MOSUNETUZUMAB
     Indication: Non-Hodgkin^s lymphoma
     Dosage: ON 24/AUG/2022, HE RECEIVED MOST RECENT DOSE 45 MG OF STUDY DRUG MOSUNETUZUMAB PRIOR TO SAE/AE.
     Route: 058
     Dates: start: 20220713
  2. POLATUZUMAB VEDOTIN [Suspect]
     Active Substance: POLATUZUMAB VEDOTIN
     Indication: Non-Hodgkin^s lymphoma
     Dosage: ON 24/AUG/2022, HE RECEIVED MOST RECENT DOSE 173.3 MG OF STUDY DRUG POLATUZUMAB VEDOTIN PRIOR TO SAE
     Route: 042
     Dates: start: 20220713
  3. AMLODIPINE BESYLATE [Concomitant]
     Active Substance: AMLODIPINE BESYLATE
     Route: 048
     Dates: start: 2005
  4. ACARD [Concomitant]
     Route: 048
     Dates: start: 2021
  5. ADADUT [Concomitant]
     Route: 048
     Dates: start: 2022
  6. APO-TAMIS [Concomitant]
     Route: 048
     Dates: start: 202203
  7. LUMIGAN [Concomitant]
     Active Substance: BIMATOPROST
     Dosage: 0.3 OTHER
     Route: 047
     Dates: start: 202203
  8. COMBIGAN [Concomitant]
     Active Substance: BRIMONIDINE TARTRATE\TIMOLOL MALEATE
     Route: 047
     Dates: start: 202203
  9. VIZIDOR [Concomitant]
     Dosage: 20 OTHER
     Route: 047
     Dates: start: 202203
  10. ALLOPURINOL [Concomitant]
     Active Substance: ALLOPURINOL
     Route: 048
     Dates: start: 20220706
  11. POTASSIUM CHLORIDE [Concomitant]
     Active Substance: POTASSIUM CHLORIDE
     Route: 048
     Dates: start: 20220706
  12. BUPRENORPHINE [Concomitant]
     Active Substance: BUPRENORPHINE
     Dosage: 52.5 OTHER
     Route: 062
     Dates: start: 20220810, end: 20220813
  13. MORPHINE [Concomitant]
     Active Substance: MORPHINE
     Route: 048
     Dates: start: 20220810, end: 20220813
  14. THIOCODIN [Concomitant]
     Route: 048
     Dates: start: 20220810
  15. DEXAMETHASONE [Concomitant]
     Active Substance: DEXAMETHASONE
     Route: 048
     Dates: start: 20220810, end: 20220817
  16. DEXAMETHASONE [Concomitant]
     Active Substance: DEXAMETHASONE
     Route: 048
     Dates: start: 20220818
  17. FUROSEMIDE [Concomitant]
     Active Substance: FUROSEMIDE
     Route: 048
     Dates: start: 20220720

REACTIONS (1)
  - Pneumonia [Fatal]

NARRATIVE: CASE EVENT DATE: 20220909
